FAERS Safety Report 8486509-2 (Version None)
Quarter: 2012Q3

REPORT INFORMATION
  Report Type: 
  Country: None (occurrence: None)
  Receive Date: 20120703
  Receipt Date: 20120628
  Transmission Date: 20120928
  Serious: No
  Sender: FDA-Public Use
  Company Number: US-PFIZER INC-2012156178

PATIENT
  Sex: Female
  Weight: 69.841 kg

DRUGS (1)
  1. ATORVASTATIN CALCIUM [Suspect]
     Indication: BLOOD CHOLESTEROL INCREASED
     Dosage: 20 MG, 1X/DAY
     Route: 048
     Dates: end: 20120601

REACTIONS (5)
  - RHINORRHOEA [None]
  - HYPERSENSITIVITY [None]
  - ERYTHEMA [None]
  - LACRIMATION INCREASED [None]
  - SNEEZING [None]
